FAERS Safety Report 24205116 (Version 1)
Quarter: 2024Q3

REPORT INFORMATION
  Report Type: Other
  Country: AR (occurrence: AR)
  Receive Date: 20240813
  Receipt Date: 20240813
  Transmission Date: 20241016
  Serious: Yes (Hospitalization, Other)
  Sender: VISTAPHARM
  Company Number: AR-Vista Pharmaceuticals Inc.-2160349

PATIENT
  Age: 15 Year
  Sex: Male

DRUGS (6)
  1. SULFAMETHOXAZOLE\TRIMETHOPRIM [Suspect]
     Active Substance: SULFAMETHOXAZOLE\TRIMETHOPRIM
     Indication: Urinary tract infection
     Route: 065
  2. ISONIAZID [Concomitant]
     Active Substance: ISONIAZID
     Route: 065
  3. MEPREDNISONE [Concomitant]
     Active Substance: MEPREDNISONE
     Route: 065
  4. ETHAMBUTOL [Concomitant]
     Active Substance: ETHAMBUTOL HYDROCHLORIDE
     Route: 065
  5. PYRAZINAMIDE [Concomitant]
     Active Substance: PYRAZINAMIDE
     Route: 065
  6. RIFAMPIN [Concomitant]
     Active Substance: RIFAMPIN
     Route: 065

REACTIONS (4)
  - Pericardial effusion [Unknown]
  - Conjunctival hyperaemia [Unknown]
  - Pleural effusion [Unknown]
  - Oedema [Unknown]
